FAERS Safety Report 24588162 (Version 1)
Quarter: 2024Q4

REPORT INFORMATION
  Report Type: Report from Study
  Country: US (occurrence: US)
  Receive Date: 20241107
  Receipt Date: 20241107
  Transmission Date: 20250114
  Serious: Yes (Death, Other)
  Sender: RANBAXY
  Company Number: US-SUN PHARMACEUTICAL INDUSTRIES LTD-2024R1-477950

PATIENT
  Age: 64 Year
  Sex: Female

DRUGS (1)
  1. METFORMIN [Suspect]
     Active Substance: METFORMIN HYDROCHLORIDE
     Indication: Diabetes mellitus
     Dosage: UNK
     Route: 065

REACTIONS (14)
  - Toxicity to various agents [Fatal]
  - Acute kidney injury [Fatal]
  - Electrocardiogram QT prolonged [Fatal]
  - Hepatotoxicity [Fatal]
  - Hypotension [Fatal]
  - Metabolic acidosis [Fatal]
  - Thrombocytopenia [Fatal]
  - Rhabdomyolysis [Fatal]
  - Coagulopathy [Fatal]
  - Depressed level of consciousness [Fatal]
  - Haemolysis [Fatal]
  - Delirium [Fatal]
  - Leukocytosis [Fatal]
  - Hypoglycaemia [Fatal]
